FAERS Safety Report 6398515-2 (Version None)
Quarter: 2009Q4

REPORT INFORMATION
  Report Type: 
  Country: None (occurrence: None)
  Receive Date: 20091013
  Receipt Date: 20091005
  Transmission Date: 20100525
  Serious: Yes (Other)
  Sender: FDA-Public Use
  Company Number: B0597539A

PATIENT

DRUGS (1)
  1. NICOTINE [Suspect]
     Route: 048

REACTIONS (1)
  - OSTEONECROSIS [None]
